FAERS Safety Report 20945999 (Version 1)
Quarter: 2022Q2

REPORT INFORMATION
  Report Type: Spontaneous
  Country: US (occurrence: None)
  Receive Date: 20220609
  Receipt Date: 20220609
  Transmission Date: 20220721
  Serious: Yes (Other)
  Sender: FDA-Public Use
  Company Number: None

PATIENT
  Age: 74 Year
  Sex: Female

DRUGS (16)
  1. AMBRISENTAN [Suspect]
     Active Substance: AMBRISENTAN
     Indication: Pulmonary hypertension
     Dosage: FREQUENCY : DAILY;?
     Route: 048
     Dates: start: 20191220
  2. ADEMPAS [Concomitant]
     Active Substance: RIOCIGUAT
  3. RIRIFAXIMIN [Concomitant]
  4. NORCO [Concomitant]
     Active Substance: ACETAMINOPHEN\HYDROCODONE BITARTRATE
  5. ONDANSETRON [Concomitant]
  6. LASIX [Concomitant]
     Active Substance: FUROSEMIDE
  7. OMEPRAZOLE [Concomitant]
  8. ATORVASTATIN [Concomitant]
  9. ATENOLOL [Concomitant]
     Active Substance: ATENOLOL
  10. METOCLOPRAMIDE [Concomitant]
  11. LEVOTHYROXINE [Concomitant]
  12. LACTINEX [Concomitant]
  13. ALVESCO HFA [Concomitant]
  14. ALBUTEROL HFA [Concomitant]
  15. TYLENOL [Concomitant]
     Active Substance: ACETAMINOPHEN
  16. VOLATAREN TOP GEL [Concomitant]

REACTIONS (5)
  - Nausea [None]
  - Vomiting [None]
  - Diarrhoea [None]
  - Abdominal pain [None]
  - Gastroenteritis viral [None]

NARRATIVE: CASE EVENT DATE: 20220603
